FAERS Safety Report 9473050 (Version 1)
Quarter: 2013Q3

REPORT INFORMATION
  Report Type: Spontaneous
  Country: US (occurrence: US)
  Receive Date: 20130823
  Receipt Date: 20130823
  Transmission Date: 20140515
  Serious: No
  Sender: FDA-Public Use
  Company Number: US-BRISTOL-MYERS SQUIBB COMPANY-17374059

PATIENT
  Age: 54 Year
  Sex: Female

DRUGS (2)
  1. SPRYCEL (CML) TABS 100 MG [Suspect]
     Dates: start: 201212
  2. LISINOPRIL [Concomitant]

REACTIONS (2)
  - Aphthous stomatitis [Unknown]
  - Haematocrit decreased [Unknown]
